FAERS Safety Report 7047300-7 (Version None)
Quarter: 2010Q4

REPORT INFORMATION
  Report Type: 
  Country: None (occurrence: None)
  Receive Date: 20101008
  Receipt Date: 20100929
  Transmission Date: 20110411
  Serious: Yes (Other)
  Sender: FDA-Public Use
  Company Number: 2010JP005734

PATIENT
  Age: 32 Year
  Sex: Female

DRUGS (1)
  1. PROGRAF [Suspect]
     Indication: RENAL TRANSPLANT
     Dosage: ORAL
     Route: 048

REACTIONS (6)
  - DRUG EXPOSURE DURING PREGNANCY [None]
  - GESTATIONAL HYPERTENSION [None]
  - NEPHROPATHY [None]
  - PRE-ECLAMPSIA [None]
  - PREGNANCY [None]
  - PREMATURE LABOUR [None]
